FAERS Safety Report 10264672 (Version 1)
Quarter: 2014Q2

REPORT INFORMATION
  Report Type: Spontaneous
  Country: CA (occurrence: CA)
  Receive Date: 20140627
  Receipt Date: 20140627
  Transmission Date: 20141212
  Serious: Yes (Other)
  Sender: FDA-Public Use
  Company Number: CA-ROCHE-1425490

PATIENT
  Sex: Female

DRUGS (7)
  1. PERJETA [Suspect]
     Indication: PRODUCT USED FOR UNKNOWN INDICATION
     Dosage: THERAPY DURATION:  1 DAY, 14 ML VIAL-CONCENTRATE SOL.
     Route: 042
  2. PERJETA [Suspect]
     Dosage: THERAPY DURATION:  1 DAY, 14 ML VIAL-CONCENTRATE SOL.
     Route: 042
  3. HERCEPTIN [Suspect]
     Indication: PRODUCT USED FOR UNKNOWN INDICATION
     Dosage: THERAPY DURATION:  1 DAY
     Route: 042
  4. HERCEPTIN [Suspect]
     Dosage: THERAPY DURATION:  1 DAY
     Route: 042
  5. HERCEPTIN [Suspect]
     Dosage: THERAPY DURATION:  1 DAY
     Route: 042
  6. TAXOTERE [Suspect]
     Indication: PRODUCT USED FOR UNKNOWN INDICATION
     Dosage: DURATION THERAPY:  1 DAY
     Route: 042
  7. TAXOTERE [Suspect]
     Dosage: DURATION THERAPY:  1 DAY
     Route: 042

REACTIONS (16)
  - Abdominal pain upper [Not Recovered/Not Resolved]
  - Decreased appetite [Not Recovered/Not Resolved]
  - Diarrhoea [Not Recovered/Not Resolved]
  - Disturbance in attention [Not Recovered/Not Resolved]
  - Dizziness [Not Recovered/Not Resolved]
  - Fatigue [Not Recovered/Not Resolved]
  - Hot flush [Not Recovered/Not Resolved]
  - Hyperhidrosis [Not Recovered/Not Resolved]
  - Mucosal inflammation [Not Recovered/Not Resolved]
  - Mucous membrane disorder [Not Recovered/Not Resolved]
  - Nasal obstruction [Not Recovered/Not Resolved]
  - Nausea [Not Recovered/Not Resolved]
  - Neuropathy peripheral [Not Recovered/Not Resolved]
  - Rash [Not Recovered/Not Resolved]
  - Rhinorrhoea [Not Recovered/Not Resolved]
  - Weight decreased [Not Recovered/Not Resolved]
